FAERS Safety Report 25285022 (Version 2)
Quarter: 2025Q2

REPORT INFORMATION
  Report Type: Spontaneous
  Country: US (occurrence: US)
  Receive Date: 20250508
  Receipt Date: 20250515
  Transmission Date: 20250717
  Serious: No
  Sender: JOHNSON AND JOHNSON
  Company Number: US-JNJFOC-20250503389

PATIENT
  Age: 46 Year
  Sex: Female

DRUGS (4)
  1. OPSUMIT [Suspect]
     Active Substance: MACITENTAN
     Indication: Product used for unknown indication
     Route: 048
  2. TYVASO [Suspect]
     Active Substance: TREPROSTINIL
     Indication: Pulmonary arterial hypertension
     Dosage: S 0.003 ?G/KG, CONTINUOUS VIA INTRAVENOUS (IV) ROUTE.
     Route: 042
     Dates: start: 202206
  3. WINREVAIR [SOTATERCEPT] [Concomitant]
     Indication: Product used for unknown indication
  4. MACITENTAN\TADALAFIL [Concomitant]
     Active Substance: MACITENTAN\TADALAFIL
     Indication: Product used for unknown indication

REACTIONS (7)
  - Headache [Unknown]
  - Malaise [Unknown]
  - Fatigue [Unknown]
  - Injection site extravasation [Unknown]
  - Injection site pain [Not Recovered/Not Resolved]
  - Injection site erythema [Unknown]
  - Diarrhoea [Unknown]
